FAERS Safety Report 8058952-7 (Version None)
Quarter: 2012Q1

REPORT INFORMATION
  Report Type: 
  Country: None (occurrence: None)
  Receive Date: 20120119
  Receipt Date: 20120119
  Transmission Date: 20120608
  Serious: Yes (Hospitalization)
  Sender: FDA-Public Use
  Company Number: None

PATIENT
  Age: 70 Year
  Sex: Male
  Weight: 116.9 kg

DRUGS (14)
  1. TRAZODONE HCL [Concomitant]
  2. ARTIFICIAL TEARS [Concomitant]
  3. METFORMIN HCL [Concomitant]
  4. NORVASC [Concomitant]
  5. HYDROCODONE BITARTRATE AND ACETAMINOPHEN [Concomitant]
  6. GABAPENTIN [Concomitant]
  7. POTASSIUM CHLORIDE [Concomitant]
  8. PHENAZOPYRIDINE HCL TAB [Concomitant]
  9. DUTASTERIDE [Concomitant]
  10. LISINOPRIL [Suspect]
  11. CELEXA [Concomitant]
  12. MIRALAX [Concomitant]
  13. INDAPAMIDE [Suspect]
  14. PRAVASTATIN [Concomitant]

REACTIONS (1)
  - ANGIOEDEMA [None]
